FAERS Safety Report 8580508-8 (Version None)
Quarter: 2012Q3

REPORT INFORMATION
  Report Type: 
  Country: None (occurrence: None)
  Receive Date: 20120808
  Receipt Date: 20120801
  Transmission Date: 20120928
  Serious: Yes (Other)
  Sender: FDA-Public Use
  Company Number: JP-VERTEX PHARMACEUTICALS INC.-AE-2012-010607

PATIENT
  Age: 65 Year
  Sex: Female

DRUGS (13)
  1. REBETOL [Concomitant]
     Indication: HEPATITIS C
     Route: 048
     Dates: start: 20120710, end: 20120715
  2. REBETOL [Concomitant]
     Route: 048
     Dates: start: 20120716, end: 20120723
  3. PEG-INTRON [Concomitant]
     Indication: HEPATITIS C
     Route: 058
     Dates: start: 20120710
  4. TELAVIC [Suspect]
     Route: 048
     Dates: start: 20120716
  5. RESTAMIN [Concomitant]
     Route: 061
     Dates: start: 20120719, end: 20120724
  6. REBETOL [Concomitant]
     Route: 048
     Dates: start: 20120725
  7. PROCHLORPERAZINE [Concomitant]
     Route: 048
     Dates: start: 20120713
  8. REBETOL [Concomitant]
     Route: 048
     Dates: start: 20120724, end: 20120724
  9. SENNOSIDE [Concomitant]
     Route: 048
     Dates: start: 20120724
  10. ALLEGRA [Concomitant]
     Route: 048
     Dates: start: 20120720
  11. TELAVIC [Suspect]
     Indication: HEPATITIS C
     Route: 048
     Dates: start: 20120710, end: 20120715
  12. PRAVASTAN NA [Concomitant]
     Route: 048
     Dates: start: 20120710
  13. SENNOSIDE [Concomitant]
     Route: 048
     Dates: start: 20120711, end: 20120723

REACTIONS (1)
  - SYNCOPE [None]
